FAERS Safety Report 14501859 (Version 1)
Quarter: 2018Q1

REPORT INFORMATION
  Report Type: Spontaneous
  Country: FR (occurrence: FR)
  Receive Date: 20180207
  Receipt Date: 20180207
  Transmission Date: 20180509
  Serious: Yes (Disabling)
  Sender: FDA-Public Use
  Company Number: FR-MERCK KGAA-2041615

PATIENT
  Age: 47 Year
  Sex: Female
  Weight: 99 kg

DRUGS (1)
  1. NOVOTHYROX [Suspect]
     Active Substance: LEVOTHYROXINE SODIUM
     Indication: HYPOTHYROIDISM
     Route: 048
     Dates: start: 20170401, end: 20171204

REACTIONS (12)
  - Weight increased [Unknown]
  - Vertigo [Unknown]
  - Irritability [Unknown]
  - Migraine [Unknown]
  - Fatigue [Unknown]
  - Menstruation delayed [Unknown]
  - Insomnia [Unknown]
  - Disturbance in attention [Unknown]
  - Palpitations [Unknown]
  - Dyspepsia [Unknown]
  - Hot flush [Unknown]
  - Muscle spasms [Unknown]

NARRATIVE: CASE EVENT DATE: 201706
